FAERS Safety Report 17686585 (Version 1)
Quarter: 2020Q2

REPORT INFORMATION
  Report Type: Spontaneous
  Country: US (occurrence: US)
  Receive Date: 20200420
  Receipt Date: 20200420
  Transmission Date: 20200714
  Serious: Yes (Other)
  Sender: FDA-Public Use
  Company Number: US-CELLTRION INC.-2020US020503

PATIENT

DRUGS (5)
  1. SULFASALAZINE. [Concomitant]
     Active Substance: SULFASALAZINE
     Indication: CONDITION AGGRAVATED
  2. CANASA [Concomitant]
     Active Substance: MESALAMINE
     Indication: CONDITION AGGRAVATED
  3. INFLECTRA [Suspect]
     Active Substance: INFLIXIMAB-DYYB
     Indication: COLITIS ULCERATIVE
     Dosage: 300 MG EVERY 8 WEEKS
     Route: 042
     Dates: start: 20181114, end: 20200309
  4. CANASA [Concomitant]
     Active Substance: MESALAMINE
     Indication: GASTROINTESTINAL DISORDER
  5. SULFASALAZINE. [Concomitant]
     Active Substance: SULFASALAZINE
     Indication: GASTROINTESTINAL DISORDER

REACTIONS (2)
  - Bone pain [Recovered/Resolved]
  - Gait disturbance [Unknown]

NARRATIVE: CASE EVENT DATE: 20191118
